FAERS Safety Report 9287842 (Version 1)
Quarter: 2013Q2

REPORT INFORMATION
  Report Type: Spontaneous
  Country: FR (occurrence: FR)
  Receive Date: 20130514
  Receipt Date: 20130514
  Transmission Date: 20140414
  Serious: Yes (Hospitalization)
  Sender: FDA-Public Use
  Company Number: FR-JNJFOC-20130504673

PATIENT
  Age: 75 Year
  Sex: Female

DRUGS (10)
  1. XARELTO [Suspect]
     Indication: CEREBROVASCULAR ACCIDENT PROPHYLAXIS
     Dosage: FILM COATED TABLET
     Route: 048
     Dates: start: 20130312, end: 20130319
  2. XARELTO [Suspect]
     Indication: ATRIAL FIBRILLATION
     Dosage: FILM COATED TABLET
     Route: 048
     Dates: start: 20130312, end: 20130319
  3. XARELTO [Suspect]
     Indication: ARRHYTHMIA
     Dosage: FILM COATED TABLET
     Route: 048
     Dates: start: 20130312, end: 20130319
  4. AMOXICILLINE [Suspect]
     Indication: PRODUCT USED FOR UNKNOWN INDICATION
     Route: 065
     Dates: start: 20130315, end: 20130318
  5. CLAVULANIC ACID [Suspect]
     Indication: LUNG DISORDER
     Route: 048
     Dates: start: 20130315, end: 20130319
  6. BUSPIRONE [Concomitant]
     Indication: ANXIETY
     Route: 065
  7. EFFEXOR [Concomitant]
     Indication: DEPRESSION
     Route: 065
  8. LASILIX [Concomitant]
     Indication: HYPERTENSION
     Route: 065
  9. SERESTA [Concomitant]
     Indication: ANXIETY
     Route: 065
  10. ZOPICLONE [Concomitant]
     Indication: ANXIETY
     Route: 065

REACTIONS (2)
  - Purpura [Recovered/Resolved]
  - Rash erythematous [Recovered/Resolved]
